FAERS Safety Report 22529834 (Version 1)
Quarter: 2023Q2

REPORT INFORMATION
  Report Type: Spontaneous
  Country: CA (occurrence: CA)
  Receive Date: 20230607
  Receipt Date: 20230607
  Transmission Date: 20230722
  Serious: Yes (Life-Threatening, Hospitalization)
  Sender: FDA-Public Use
  Company Number: None

PATIENT
  Age: 6 Month
  Sex: Female

DRUGS (1)
  1. CARBOPLATIN [Suspect]
     Active Substance: CARBOPLATIN
     Indication: Product used for unknown indication
     Dosage: SOLUTION INTRAVENOUS

REACTIONS (6)
  - Central venous catheterisation [Unknown]
  - Depressed level of consciousness [Unknown]
  - Endotracheal intubation [Unknown]
  - Hypotension [Unknown]
  - Hypoxia [Unknown]
  - Respiratory distress [Unknown]
